FAERS Safety Report 12571408 (Version 1)
Quarter: 2016Q3

REPORT INFORMATION
  Report Type: Spontaneous
  Country: US (occurrence: US)
  Receive Date: 20160719
  Receipt Date: 20160719
  Transmission Date: 20161109
  Serious: No
  Sender: FDA-Public Use
  Company Number: US-ENDO PHARMACEUTICALS INC.-2016-002836

PATIENT
  Sex: Female

DRUGS (1)
  1. ALLOPURINOL TABLETS 300MG [Suspect]
     Active Substance: ALLOPURINOL
     Indication: GOUT
     Route: 048
     Dates: start: 20151217

REACTIONS (3)
  - Product physical issue [Unknown]
  - Unevaluable event [Unknown]
  - Drug ineffective [Recovered/Resolved]
